FAERS Safety Report 15150035 (Version 1)
Quarter: 2018Q3

REPORT INFORMATION
  Report Type: Spontaneous
  Country: US (occurrence: US)
  Receive Date: 20180716
  Receipt Date: 20180716
  Transmission Date: 20181010
  Serious: Yes (Other)
  Sender: FDA-Public Use
  Company Number: US-PURDUE-USA-2018-0144188

PATIENT
  Age: 3 Day

DRUGS (1)
  1. BUPRENORPHINE (SIMILAR TO NDA 21?306) [Suspect]
     Active Substance: BUPRENORPHINE
     Indication: PRODUCT USED FOR UNKNOWN INDICATION
     Dosage: UNK
     Route: 062
     Dates: start: 201804

REACTIONS (3)
  - Apgar score low [Unknown]
  - Product use issue [Unknown]
  - Victim of child abuse [Unknown]

NARRATIVE: CASE EVENT DATE: 201804
